FAERS Safety Report 6733126-8 (Version None)
Quarter: 2010Q2

REPORT INFORMATION
  Report Type: 
  Country: None (occurrence: None)
  Receive Date: 20100520
  Receipt Date: 20100511
  Transmission Date: 20101027
  Serious: Yes (Hospitalization, Other)
  Sender: FDA-Public Use
  Company Number: DE-BIOGENIDEC-2009BI037431

PATIENT
  Age: 55 Year
  Sex: Male

DRUGS (6)
  1. TYSABRI [Suspect]
     Indication: MULTIPLE SCLEROSIS
     Route: 042
     Dates: start: 20070423, end: 20090408
  2. CIPRALEX [Concomitant]
  3. VIGIL [Concomitant]
     Indication: FATIGUE
  4. WOBENZYM [Concomitant]
  5. VIVEO [Concomitant]
  6. MULTI-VITAMINS [Concomitant]

REACTIONS (1)
  - PROSTATE CANCER [None]
